FAERS Safety Report 5265769-5 (Version None)
Quarter: 2007Q1

REPORT INFORMATION
  Report Type: 
  Country: None (occurrence: None)
  Receive Date: 20061213
  Receipt Date: 20041230
  Transmission Date: 20070707
  Serious: Yes (Other)
  Sender: FDA-Public Use
  Company Number: 2004UW26291

PATIENT
  Age: 68 Year
  Sex: Male
  Weight: 56.699 kg

DRUGS (3)
  1. IRESSA [Suspect]
     Indication: METASTASES TO BONE
     Dates: start: 20041101
  2. IRESSA [Suspect]
     Indication: THROAT CANCER
     Dates: start: 20041101
  3. MORPHINE [Concomitant]

REACTIONS (1)
  - INCREASED BRONCHIAL SECRETION [None]
